FAERS Safety Report 8378867-4 (Version None)
Quarter: 2012Q2

REPORT INFORMATION
  Report Type: 
  Country: None (occurrence: None)
  Receive Date: 20120523
  Receipt Date: 20120509
  Transmission Date: 20120825
  Serious: Yes (Death, Other)
  Sender: FDA-Public Use
  Company Number: US-RANBAXY-2012US-56359

PATIENT
  Sex: Female

DRUGS (1)
  1. CETIRIZINE HCL [Suspect]
     Indication: HYPERSENSITIVITY
     Dosage: UNK
     Route: 065
     Dates: start: 20120509

REACTIONS (4)
  - VISION BLURRED [None]
  - ALTERED STATE OF CONSCIOUSNESS [None]
  - DIZZINESS [None]
  - CHEST PAIN [None]
